FAERS Safety Report 7211305-3 (Version None)
Quarter: 2011Q1

REPORT INFORMATION
  Report Type: 
  Country: None (occurrence: None)
  Receive Date: 20110105
  Receipt Date: 20101231
  Transmission Date: 20110831
  Serious: Yes (Death)
  Sender: FDA-Public Use
  Company Number: US-PFIZER INC-2011000499

PATIENT
  Age: 13 Month
  Sex: Female

DRUGS (2)
  1. HEPARIN SODIUM [Suspect]
  2. LIGHT LIQUID PARAFFIN [Suspect]

REACTIONS (2)
  - DEATH [None]
  - ACCIDENTAL EXPOSURE [None]
